FAERS Safety Report 7681382-4 (Version None)
Quarter: 2011Q3

REPORT INFORMATION
  Report Type: 
  Country: None (occurrence: None)
  Receive Date: 20110809
  Receipt Date: 20110610
  Transmission Date: 20111222
  Serious: Yes (Life-Threatening)
  Sender: FDA-Public Use
  Company Number: 2011SP027064

PATIENT
  Age: 65 Year
  Sex: Male
  Weight: 72 kg

DRUGS (4)
  1. PROPOFOL [Suspect]
     Indication: INDUCTION OF ANAESTHESIA
     Dosage: 70 MG; IV
     Route: 042
     Dates: start: 20110413, end: 20110413
  2. UNASYN [Suspect]
     Indication: ANTIBIOTIC PROPHYLAXIS
     Dosage: 1,5 GM; IV
     Route: 042
     Dates: start: 20110413, end: 20110413
  3. XYLOCAINE [Suspect]
     Indication: INDUCTION OF ANAESTHESIA
     Dosage: 2 ML; OROP
     Route: 049
     Dates: start: 20110413, end: 20110413
  4. ROCURONIUM BROMIDE [Suspect]
     Indication: NEUROMUSCULAR BLOCKING THERAPY
     Dosage: 50 MG;ONCE;IV
     Route: 042
     Dates: start: 20110413, end: 20110413

REACTIONS (5)
  - ELECTROCARDIOGRAM ST SEGMENT ELEVATION [None]
  - ARTERIOSPASM CORONARY [None]
  - CIRCULATORY COLLAPSE [None]
  - GENERALISED ERYTHEMA [None]
  - TACHYCARDIA [None]
